FAERS Safety Report 20448726 (Version 1)
Quarter: 2022Q1

REPORT INFORMATION
  Report Type: Report from Study
  Country: US (occurrence: US)
  Receive Date: 20220209
  Receipt Date: 20220209
  Transmission Date: 20220424
  Serious: Yes (Other)
  Sender: FDA-Public Use
  Company Number: US-PFIZER INC-202200178861

PATIENT
  Age: 30 Year
  Sex: Male

DRUGS (4)
  1. XANAX [Interacting]
     Active Substance: ALPRAZOLAM
     Dosage: UNK
  2. METHAMPHETAMINE HYDROCHLORIDE [Interacting]
     Active Substance: METHAMPHETAMINE HYDROCHLORIDE
     Dosage: UNK
  3. AMPHETAMINE [Interacting]
     Active Substance: AMPHETAMINE
     Dosage: UNK
  4. LORTAB [Interacting]
     Active Substance: ACETAMINOPHEN\HYDROCODONE BITARTRATE
     Dosage: UNK

REACTIONS (1)
  - Drug interaction [Unknown]
